FAERS Safety Report 20898992 (Version 1)
Quarter: 2022Q2

REPORT INFORMATION
  Report Type: Spontaneous
  Country: US (occurrence: US)
  Receive Date: 20220601
  Receipt Date: 20220601
  Transmission Date: 20220721
  Serious: Yes (Other)
  Sender: FDA-Public Use
  Company Number: US-JNJFOC-20220560242

PATIENT
  Age: 75 Year
  Sex: Female
  Weight: 68.100 kg

DRUGS (6)
  1. XARELTO [Suspect]
     Active Substance: RIVAROXABAN
     Indication: Anticoagulant therapy
     Route: 048
     Dates: start: 2019
  2. ROSUVASTATIN [Concomitant]
     Active Substance: ROSUVASTATIN
     Indication: Hypercholesterolaemia
     Route: 065
  3. EZETIMIBE [Concomitant]
     Active Substance: EZETIMIBE
     Indication: Hypercholesterolaemia
     Route: 065
     Dates: start: 2020
  4. METOPROLOL SUCCINATE [Concomitant]
     Active Substance: METOPROLOL SUCCINATE
     Indication: Product used for unknown indication
     Dosage: FREQUENCY 0.5
     Route: 048
  5. PAROXETINE [Concomitant]
     Active Substance: PAROXETINE
     Indication: Anxiety
     Route: 065
  6. CANDESARTAN [Concomitant]
     Active Substance: CANDESARTAN
     Indication: Blood pressure measurement
     Dosage: 35/25MG ONCE DAILY

REACTIONS (3)
  - Eye haemorrhage [Not Recovered/Not Resolved]
  - SARS-CoV-2 test positive [Unknown]
  - Vitreous floaters [Unknown]

NARRATIVE: CASE EVENT DATE: 20220510
